FAERS Safety Report 15001229 (Version 1)
Quarter: 2018Q2

REPORT INFORMATION
  Report Type: Spontaneous
  Country: US (occurrence: US)
  Receive Date: 20180612
  Receipt Date: 20180612
  Transmission Date: 20180711
  Serious: Yes (Hospitalization)
  Sender: FDA-Public Use
  Company Number: US-NAPPMUNDI-GBR-2018-0056613

PATIENT
  Age: 46 Year
  Sex: Female
  Weight: 73 kg

DRUGS (4)
  1. OXYNORM [Suspect]
     Active Substance: OXYCODONE HYDROCHLORIDE
     Indication: ARTHRALGIA
     Dosage: 40 MG, PRN
     Route: 048
     Dates: start: 20170616
  2. DENOSUMAB [Concomitant]
     Active Substance: DENOSUMAB
     Indication: RESORPTION BONE INCREASED
     Dosage: UNK
     Route: 058
     Dates: start: 20170928
  3. OXYCONTIN [Suspect]
     Active Substance: OXYCODONE HYDROCHLORIDE
     Indication: ARTHRALGIA
     Dosage: 140 MG, BID
     Route: 048
     Dates: start: 20170616
  4. SUNITINIB MALATE. [Suspect]
     Active Substance: SUNITINIB MALATE
     Indication: RENAL CELL CARCINOMA
     Dosage: 50 MG, DAILY, 4 WEEKS ON, 2 WEEKS OFF
     Route: 048
     Dates: start: 20171016

REACTIONS (1)
  - Intestinal obstruction [Recovered/Resolved]

NARRATIVE: CASE EVENT DATE: 20180430
